FAERS Safety Report 8392421-X (Version None)
Quarter: 2012Q2

REPORT INFORMATION
  Report Type: 
  Country: None (occurrence: None)
  Receive Date: 20120529
  Receipt Date: 20120522
  Transmission Date: 20120825
  Serious: No
  Sender: FDA-Public Use
  Company Number: US-BAYER-2012-052608

PATIENT
  Age: 68 Year
  Sex: Male
  Weight: 70 kg

DRUGS (2)
  1. NAPROXEN SODIUM [Suspect]
     Dosage: 1 TABLET AS NEEDED  - 100 COUNT
     Route: 048
     Dates: start: 20120401
  2. VYTORIN [Suspect]

REACTIONS (2)
  - INITIAL INSOMNIA [None]
  - SOMNOLENCE [None]
